FAERS Safety Report 14927403 (Version 2)
Quarter: 2018Q2

REPORT INFORMATION
  Report Type: Spontaneous
  Country: US (occurrence: US)
  Receive Date: 20180523
  Receipt Date: 20180530
  Transmission Date: 20180711
  Serious: No
  Sender: FDA-Public Use
  Company Number: US-PFIZER INC-2018209294

PATIENT
  Age: 54 Year
  Sex: Female

DRUGS (2)
  1. ENBREL [Suspect]
     Active Substance: ETANERCEPT
     Dosage: UNK
  2. XELJANZ [Suspect]
     Active Substance: TOFACITINIB CITRATE
     Dosage: UNK

REACTIONS (7)
  - Joint swelling [Unknown]
  - Arthralgia [Unknown]
  - Joint effusion [Unknown]
  - Musculoskeletal stiffness [Unknown]
  - Back pain [Unknown]
  - Condition aggravated [Unknown]
  - Pain in extremity [Unknown]
